FAERS Safety Report 8001046-7 (Version None)
Quarter: 2011Q4

REPORT INFORMATION
  Report Type: 
  Country: None (occurrence: None)
  Receive Date: 20111222
  Receipt Date: 20110819
  Transmission Date: 20120403
  Serious: No
  Sender: FDA-Public Use
  Company Number: US-GLAXOSMITHKLINE-A0941726A

PATIENT
  Age: 45 Year
  Sex: Male

DRUGS (2)
  1. FLONASE [Suspect]
     Indication: CHRONIC OBSTRUCTIVE PULMONARY DISEASE
     Dosage: 2SPR TWICE PER DAY
     Route: 045
     Dates: start: 20101027, end: 20101103
  2. ALBUTEROL [Concomitant]

REACTIONS (9)
  - COUGH [None]
  - PHARYNGEAL OEDEMA [None]
  - RHINORRHOEA [None]
  - DYSPNOEA [None]
  - FAECES DISCOLOURED [None]
  - ABDOMINAL HERNIA [None]
  - ABDOMINAL DISTENSION [None]
  - MUSCLE RUPTURE [None]
  - DRUG DISPENSING ERROR [None]
